FAERS Safety Report 7798613-2 (Version None)
Quarter: 2011Q4

REPORT INFORMATION
  Report Type: 
  Country: None (occurrence: None)
  Receive Date: 20111005
  Receipt Date: 20110927
  Transmission Date: 20120403
  Serious: Yes (Other)
  Sender: FDA-Public Use
  Company Number: US-AMGEN-USASP2011035316

PATIENT
  Age: 14 Year
  Sex: Female

DRUGS (9)
  1. LORATADINE [Concomitant]
  2. ALBUTEROL [Concomitant]
  3. NPLATE [Suspect]
     Indication: IDIOPATHIC THROMBOCYTOPENIC PURPURA
     Dosage: UNK
     Dates: start: 20110623
  4. NUTREN 1.0 [Concomitant]
  5. NEPRO [Concomitant]
  6. ISOPROTERENOL                      /00006301/ [Concomitant]
  7. SINGULAIR [Concomitant]
  8. SYMBICORT [Concomitant]
  9. IVIGLOB-EX [Concomitant]

REACTIONS (2)
  - PULMONARY HAEMORRHAGE [None]
  - PYREXIA [None]
